FAERS Safety Report 8230616-6 (Version None)
Quarter: 2012Q1

REPORT INFORMATION
  Report Type: 
  Country: None (occurrence: None)
  Receive Date: 20120320
  Receipt Date: 20120306
  Transmission Date: 20120608
  Serious: Yes (Hospitalization, Other)
  Sender: FDA-Public Use
  Company Number: DSJ-2011-27277

PATIENT
  Sex: Female

DRUGS (3)
  1. AMLODIPINE BESYLATE AND OLMESARTAN MEDOXOMIL [Suspect]
     Indication: HYPERTENSION
     Dosage: 40/10 MG (1 IN 1 D), PER ORAL
     Route: 048
     Dates: start: 20090714, end: 20111201
  2. DIHYDROERGOCRISTINE (DIHYDROERGOCRISTINE) [Concomitant]
  3. DIGOXIN [Concomitant]

REACTIONS (6)
  - BLOOD PRESSURE INCREASED [None]
  - DRUG INEFFECTIVE [None]
  - CONDITION AGGRAVATED [None]
  - COAGULOPATHY [None]
  - FEMUR FRACTURE [None]
  - FALL [None]
